FAERS Safety Report 9132690 (Version 1)
Quarter: 2013Q1

REPORT INFORMATION
  Report Type: Spontaneous
  Country: US (occurrence: US)
  Receive Date: 20130301
  Receipt Date: 20130301
  Transmission Date: 20140127
  Serious: Yes (Hospitalization)
  Sender: FDA-Public Use
  Company Number: US-PFIZER INC-2013071083

PATIENT
  Age: 42 Year
  Sex: Female
  Weight: 61.22 kg

DRUGS (4)
  1. SKELAXIN [Suspect]
     Indication: CONVULSION
     Dosage: 800 MG, 2X/DAY
     Dates: end: 201302
  2. SKELAXIN [Suspect]
     Indication: BACK PAIN
  3. SKELAXIN [Suspect]
     Indication: ARTHROFIBROSIS
  4. SKELAXIN [Suspect]
     Indication: SYSTEMIC LUPUS ERYTHEMATOSUS

REACTIONS (1)
  - Breast cyst [Unknown]
